FAERS Safety Report 25277163 (Version 1)
Quarter: 2025Q2

REPORT INFORMATION
  Report Type: Spontaneous
  Country: US (occurrence: US)
  Receive Date: 20250507
  Receipt Date: 20250507
  Transmission Date: 20250716
  Serious: No
  Sender: ROCHE
  Company Number: US-ROCHE-10000270918

PATIENT
  Sex: Male
  Weight: 78.01 kg

DRUGS (1)
  1. ACTEMRA [Suspect]
     Active Substance: TOCILIZUMAB
     Indication: Scleroderma
     Route: 065
     Dates: start: 202402, end: 202411

REACTIONS (2)
  - Off label use [Unknown]
  - Mobility decreased [Unknown]
